FAERS Safety Report 24363865 (Version 1)
Quarter: 2024Q3

REPORT INFORMATION
  Report Type: Spontaneous
  Country: US (occurrence: US)
  Receive Date: 20240925
  Receipt Date: 20240925
  Transmission Date: 20241016
  Serious: No
  Sender: RIGEL PHARMACEUTICALS
  Company Number: US-RIGEL-20240600017

PATIENT
  Sex: Male

DRUGS (1)
  1. REZLIDHIA [Suspect]
     Active Substance: OLUTASIDENIB
     Indication: Acute myeloid leukaemia
     Dosage: 150 MG , BID
     Route: 048

REACTIONS (3)
  - Adverse drug reaction [Unknown]
  - Hypersensitivity [Unknown]
  - Vomiting [Unknown]
